FAERS Safety Report 4373788-6 (Version None)
Quarter: 2004Q2

REPORT INFORMATION
  Report Type: 
  Country: None (occurrence: None)
  Receive Date: 20040601
  Receipt Date: 20030527
  Transmission Date: 20050107
  Serious: Yes (Other)
  Sender: FDA-Public Use
  Company Number: 2003161702US

PATIENT
  Sex: Male

DRUGS (2)
  1. MICRONASE [Suspect]
     Indication: DIABETES MELLITUS NON-INSULIN-DEPENDENT
     Dosage: 6.25 MG (2 AND 1/2 TABLETS) , ORAL; 12.5 MG (FIVE TABLETS), ORAL
     Route: 048
  2. INSULIN [Concomitant]

REACTIONS (1)
  - HYPOGLYCAEMIA [None]
